FAERS Safety Report 12051229 (Version 2)
Quarter: 2016Q1

REPORT INFORMATION
  Report Type: Other
  Country: US (occurrence: US)
  Receive Date: 20160209
  Receipt Date: 20160331
  Transmission Date: 20160526
  Serious: Yes (Other)
  Sender: FDA-Public Use
  Company Number: US-SHIRE-US201601130

PATIENT
  Age: 70 Year
  Sex: Female
  Weight: 75.28 kg

DRUGS (5)
  1. FENOFIBRATE. [Concomitant]
     Active Substance: FENOFIBRATE
     Indication: LIPIDS INCREASED
     Dosage: 145 MG, 1X/DAY:QD
     Route: 065
     Dates: start: 20160126
  2. LISINOPRIL. [Concomitant]
     Active Substance: LISINOPRIL
     Indication: HYPERTENSION
     Dosage: 5 MG, 1X/DAY:QD
     Route: 065
     Dates: start: 20110909
  3. LIALDA [Suspect]
     Active Substance: MESALAMINE
     Indication: COLITIS
     Dosage: 4.8 G (4 TABS), 1X/DAY:QD
     Route: 048
     Dates: start: 20160121, end: 20160124
  4. CELECOXIB. [Concomitant]
     Active Substance: CELECOXIB
     Indication: ARTHRITIS
     Dosage: 200 MG, 1X/DAY:QD
     Route: 065
     Dates: start: 20150324
  5. METFORMIN [Concomitant]
     Active Substance: METFORMIN HYDROCHLORIDE
     Indication: DIABETES MELLITUS
     Dosage: 500 MG, 1X/DAY:QD
     Route: 065
     Dates: start: 20151026

REACTIONS (1)
  - Generalised tonic-clonic seizure [Recovered/Resolved]

NARRATIVE: CASE EVENT DATE: 20160125
